FAERS Safety Report 6439007-1 (Version None)
Quarter: 2009Q4

REPORT INFORMATION
  Report Type: 
  Country: None (occurrence: None)
  Receive Date: 20091113
  Receipt Date: 20091105
  Transmission Date: 20100525
  Serious: Yes (Hospitalization)
  Sender: FDA-Public Use
  Company Number: BR-ROCHE-667397

PATIENT
  Sex: Female
  Weight: 78 kg

DRUGS (4)
  1. TAMIFLU [Suspect]
     Indication: H1N1 INFLUENZA
     Route: 048
     Dates: start: 20090804, end: 20090811
  2. ASCORBIC ACID [Concomitant]
  3. VITAMIN E [Concomitant]
  4. FOLIC ACID [Concomitant]

REACTIONS (3)
  - MUSCLE CONTRACTURE [None]
  - SINUSITIS [None]
  - STRESS [None]
